FAERS Safety Report 4918273-5 (Version None)
Quarter: 2006Q1

REPORT INFORMATION
  Report Type: 
  Country: None (occurrence: None)
  Receive Date: 20060222
  Receipt Date: 20060214
  Transmission Date: 20060701
  Serious: Yes (Other)
  Sender: FDA-Public Use
  Company Number: SE-JNJFOC-20060203983

PATIENT
  Age: 52 Year
  Sex: Male

DRUGS (4)
  1. REMICADE [Suspect]
     Dosage: THIRD INFUSION.
     Route: 042
  2. REMICADE [Suspect]
     Indication: CROHN'S DISEASE
     Dosage: 2 INFUSIONS EVERY 7 - 8 WEEKS.
     Route: 042
  3. ANTI-HYPERTENSIVE [Concomitant]
     Route: 048
  4. ENTOCORT [Concomitant]
     Route: 065

REACTIONS (3)
  - DIZZINESS [None]
  - FUNGAL INFECTION [None]
  - GASTROINTESTINAL DISORDER [None]
